FAERS Safety Report 9462672 (Version 1)
Quarter: 2013Q3

REPORT INFORMATION
  Report Type: Spontaneous
  Country: US (occurrence: None)
  Receive Date: 20130814
  Receipt Date: 20130814
  Transmission Date: 20140515
  Serious: Yes (Hospitalization)
  Sender: FDA-Public Use
  Company Number: DSU-2013-04242

PATIENT
  Age: 62 Year
  Sex: Male
  Weight: 90.72 kg

DRUGS (5)
  1. WELCHOL [Suspect]
     Indication: HYPERCHOLESTEROLAEMIA
     Route: 048
     Dates: end: 201307
  2. WELCHOL [Suspect]
     Indication: HYPERCHOLESTEROLAEMIA
     Dosage: (625 MG BID)
     Route: 048
     Dates: start: 201307
  3. AMLODIPINE (AMLODIPINE) (AMLODIPINE) [Concomitant]
  4. BENAZEPRIL (BENAZEPRIL) (BENAZEPRIL) [Concomitant]
  5. NEXIUM [Concomitant]

REACTIONS (1)
  - Cerebrovascular accident [None]
